FAERS Safety Report 6989384-8 (Version None)
Quarter: 2010Q3

REPORT INFORMATION
  Report Type: 
  Country: None (occurrence: None)
  Receive Date: 20100916
  Receipt Date: 20091030
  Transmission Date: 20110219
  Serious: Yes (Life-Threatening, Hospitalization)
  Sender: FDA-Public Use
  Company Number: FI-PFIZER INC-2009290860

PATIENT
  Sex: Male

DRUGS (4)
  1. LYRICA [Suspect]
     Indication: NEURALGIA
     Dosage: 150 MG, 2X/DAY
     Route: 048
     Dates: start: 20080101, end: 20091016
  2. IMOVANE [Concomitant]
     Dosage: 7.5 MG, 1X/DAY
     Route: 048
  3. TEMESTA [Concomitant]
     Indication: ANXIETY
     Dosage: 1 MG, 1-3 TIMES A DAY
     Route: 048
     Dates: start: 20080415
  4. DICLOMEX [Concomitant]
     Indication: PAIN
     Dosage: 50 MG, 2X/DAY
     Route: 048

REACTIONS (2)
  - GRANULOCYTOPENIA [None]
  - LEUKOPENIA [None]
